FAERS Safety Report 5352408-8 (Version None)
Quarter: 2007Q2

REPORT INFORMATION
  Report Type: 
  Country: None (occurrence: None)
  Receive Date: 20070607
  Receipt Date: 20070607
  Transmission Date: 20071010
  Serious: Yes (Other)
  Sender: FDA-Public Use
  Company Number: None

PATIENT
  Sex: Male
  Weight: 101.1521 kg

DRUGS (1)
  1. OXALIPLATIN [Suspect]
     Indication: RECTAL CANCER

REACTIONS (1)
  - BLINDNESS [None]
